FAERS Safety Report 5640408-X (Version None)
Quarter: 2008Q1

REPORT INFORMATION
  Report Type: 
  Country: None (occurrence: None)
  Receive Date: 20080226
  Receipt Date: 20080226
  Transmission Date: 20080703
  Serious: Yes (Other)
  Sender: FDA-Public Use
  Company Number: None

PATIENT
  Age: 45 Year
  Sex: Male
  Weight: 76.5218 kg

DRUGS (1)
  1. VISIPAQUE 320 [Suspect]
     Indication: CATHETERISATION CARDIAC
     Dosage: 70ML ONCE IV
     Route: 042
     Dates: start: 20080111, end: 20080111

REACTIONS (6)
  - APHASIA [None]
  - ASTHENIA [None]
  - HEADACHE [None]
  - HEMIPLEGIA [None]
  - NIH STROKE SCALE SCORE INCREASED [None]
  - SPEECH DISORDER [None]
